FAERS Safety Report 7720353-6 (Version None)
Quarter: 2011Q3

REPORT INFORMATION
  Report Type: 
  Country: None (occurrence: None)
  Receive Date: 20110830
  Receipt Date: 20110830
  Transmission Date: 20111222
  Serious: Yes (Other)
  Sender: FDA-Public Use
  Company Number: None

PATIENT
  Sex: Female
  Weight: 70.2 kg

DRUGS (1)
  1. KEPPRA [Suspect]
     Indication: IDIOPATHIC GENERALISED EPILEPSY
     Dosage: 10 ML BID PO
     Route: 048
     Dates: start: 20101004

REACTIONS (2)
  - AGITATION [None]
  - PRODUCT SUBSTITUTION ISSUE [None]
